FAERS Safety Report 10144326 (Version 1)
Quarter: 2014Q2

REPORT INFORMATION
  Report Type: Spontaneous
  Country: IT (occurrence: IT)
  Receive Date: 20140430
  Receipt Date: 20140430
  Transmission Date: 20141212
  Serious: Yes (Other)
  Sender: FDA-Public Use
  Company Number: IT-ACTAVIS-2014-08572

PATIENT
  Age: 69 Year
  Sex: Male

DRUGS (1)
  1. CLOPIDOGREL (UNKNOWN) [Suspect]
     Indication: MYOCARDIAL ISCHAEMIA
     Dosage: UNK
     Route: 065

REACTIONS (3)
  - Dyspnoea [Recovered/Resolved]
  - Cough [Recovered/Resolved]
  - Product substitution issue [Recovered/Resolved]
